FAERS Safety Report 11773941 (Version 1)
Quarter: 2015Q4

REPORT INFORMATION
  Report Type: Spontaneous
  Country: None (occurrence: US)
  Receive Date: 20151124
  Receipt Date: 20151124
  Transmission Date: 20160304
  Serious: No
  Sender: FDA-Public Use
  Company Number: US-PERNIX THERAPEUTICS-2015PT000127

PATIENT

DRUGS (1)
  1. ZOHYDRO [Suspect]
     Active Substance: HYDROCODONE BITARTRATE
     Indication: PAIN
     Dosage: 20 MG, EVERY 12 HOURS
     Route: 048

REACTIONS (4)
  - Cough [Unknown]
  - Dry mouth [Unknown]
  - Abdominal discomfort [Unknown]
  - Wheezing [Unknown]

NARRATIVE: CASE EVENT DATE: 2015
